FAERS Safety Report 5159250-1 (Version None)
Quarter: 2006Q4

REPORT INFORMATION
  Report Type: 
  Country: None (occurrence: None)
  Receive Date: 20061117
  Receipt Date: 20061110
  Transmission Date: 20070319
  Serious: Yes (Hospitalization)
  Sender: FDA-Public Use
  Company Number: FRWYE490910NOV06

PATIENT
  Sex: Male

DRUGS (5)
  1. EFFEXOR XR [Suspect]
     Indication: MENTAL DISORDER
     Dosage: 2 DOSES TOTAL DAILY TRANSPLACENTAL
     Route: 064
  2. DEPAMIDE            (VALPRPOMIDE) [Suspect]
     Dosage: 900 MG 1X PER 1 DAY TRANSPLACENTAL
     Route: 064
  3. NOCTRAN 10 [Suspect]
     Dosage: 2 TABLET 1X PER 1 DAY TRANSPLACENTAL
     Route: 064
  4. CITALOPRAM HYDROBROMIDE [Suspect]
     Dosage: 2 DOSE 1 X PER 1 DAY TRANSPLACENTAL
     Route: 064
  5. XANAX [Suspect]
     Dosage: 2 TABLET 1 X PER 1 DAY TRANSPLACENTAL
     Route: 064

REACTIONS (2)
  - CONGENITAL INTESTINAL MALFORMATION [None]
  - DRUG EXPOSURE DURING PREGNANCY [None]
